FAERS Safety Report 12367646 (Version 2)
Quarter: 2016Q3

REPORT INFORMATION
  Report Type: Spontaneous
  Country: US (occurrence: US)
  Receive Date: 20160513
  Receipt Date: 20160725
  Transmission Date: 20161109
  Serious: No
  Sender: FDA-Public Use
  Company Number: US-JNJFOC-20160326595

PATIENT

DRUGS (2)
  1. ZYRTEC [Suspect]
     Active Substance: CETIRIZINE HYDROCHLORIDE
     Indication: PRODUCT USED FOR UNKNOWN INDICATION
     Dosage: 1/2 OF A TABLET, EVERY DAY FOR TWO WEEKS
     Route: 065
  2. ZYRTEC [Suspect]
     Active Substance: CETIRIZINE HYDROCHLORIDE
     Route: 065

REACTIONS (7)
  - Oral pruritus [Unknown]
  - Urticaria [Unknown]
  - Pruritus [Unknown]
  - Withdrawal syndrome [Unknown]
  - Multiple allergies [Unknown]
  - Incorrect dose administered [Unknown]
  - Therapeutic response decreased [Unknown]
